FAERS Safety Report 8772102 (Version 2)
Quarter: 2012Q4

REPORT INFORMATION
  Report Type: 
  Country: US (occurrence: US)
  Receive Date: 20120906
  Receipt Date: 20120917
  Transmission Date: 20130627
  Serious: No
  Sender: FDA-Public Use
  Company Number: US-PURDUE-USA-2012-0092285

PATIENT
  Sex: Female
  Weight: 55.78 kg

DRUGS (1)
  1. BUTRANS [Suspect]
     Indication: BACK PAIN
     Dosage: 10 mcg/hr, daily
     Route: 062
     Dates: start: 201110, end: 201112

REACTIONS (4)
  - Drug withdrawal syndrome [Recovered/Resolved]
  - Application site scar [Not Recovered/Not Resolved]
  - Application site burn [Recovered/Resolved]
  - Application site pruritus [Recovered/Resolved]
